FAERS Safety Report 7518942 (Version 9)
Quarter: 2022Q1

REPORT INFORMATION
  Report Type: Spontaneous
  Country: JP (occurrence: JP)
  Receive Date: 20100802
  Receipt Date: 20220311
  Transmission Date: 20220423
  Serious: Yes (Other)
  Sender: FDA-Public Use
  Company Number: JP-PFIZER INC-2010091602

PATIENT
  Age: 79 Year
  Sex: Male
  Weight: 48.9 kg

DRUGS (10)
  1. LYRICA [Suspect]
     Active Substance: PREGABALIN
     Indication: Post herpetic neuralgia
     Dosage: 75 MG, 2X/DAY
     Route: 048
     Dates: start: 20100714, end: 20100720
  2. LYRICA [Suspect]
     Active Substance: PREGABALIN
     Indication: Herpes zoster
  3. ARICEPT [Suspect]
     Active Substance: DONEPEZIL HYDROCHLORIDE
     Indication: Senile dementia
     Dosage: 5 MG, 1X/DAY
     Route: 048
     Dates: start: 20090219
  4. METHYLCOBALAMIN [Suspect]
     Active Substance: METHYLCOBALAMIN
     Indication: Hypoaesthesia
     Dosage: 500 UG, 1X/DAY
     Route: 065
     Dates: start: 20090627
  5. METHYLCOBALAMIN [Suspect]
     Active Substance: METHYLCOBALAMIN
     Indication: Post herpetic neuralgia
  6. LOXOPROFEN SODIUM [Suspect]
     Active Substance: LOXOPROFEN SODIUM
     Indication: Post herpetic neuralgia
     Dosage: 60 MG, 1X/DAY
     Route: 048
     Dates: start: 20090627
  7. LOXOPROFEN SODIUM [Suspect]
     Active Substance: LOXOPROFEN SODIUM
     Indication: Pain
  8. REBAMIPIDE [Suspect]
     Active Substance: REBAMIPIDE
     Indication: Gastritis prophylaxis
     Dosage: 100 MG, 1X/DAY
     Route: 048
     Dates: start: 20090627
  9. ORYCTOLAGUS CUNICULUS SKIN [Suspect]
     Active Substance: ORYCTOLAGUS CUNICULUS SKIN
     Indication: Post herpetic neuralgia
     Dosage: 1.5 ML, MONTHLY
     Route: 042
     Dates: start: 20100430
  10. ORYCTOLAGUS CUNICULUS SKIN [Suspect]
     Active Substance: ORYCTOLAGUS CUNICULUS SKIN
     Indication: Pain

REACTIONS (3)
  - Epilepsy [Recovering/Resolving]
  - Pain [Recovering/Resolving]
  - Feeling abnormal [Recovering/Resolving]

NARRATIVE: CASE EVENT DATE: 20100715
